FAERS Safety Report 5653812-0 (Version None)
Quarter: 2008Q1

REPORT INFORMATION
  Report Type: 
  Country: None (occurrence: None)
  Receive Date: 20080206
  Receipt Date: 20070131
  Transmission Date: 20080703
  Serious: Yes (Other)
  Sender: FDA-Public Use
  Company Number: US200611002925

PATIENT
  Age: 80 Year
  Sex: Female
  Weight: 90.2 kg

DRUGS (15)
  1. EVISTA [Suspect]
     Indication: OSTEOPOROSIS
     Dosage: 60 MG, DAILY (1/D), ORAL
     Route: 048
     Dates: start: 20010101, end: 20060101
  2. PROTONIX [Concomitant]
  3. NORVASC (AMLODIPNIE) [Concomitant]
  4. PREDNISONE TAB [Concomitant]
  5. AVAPRO [Concomitant]
  6. OXYCODONE HCL [Concomitant]
  7. MULTIVITAMINS (ASCORBIC ACID, ERGOCALCIFEROL, FOLIC ACID, NICOTINAMIDE [Concomitant]
  8. OCUVITE (ASCORBIC ACID, RETINOL, TOCOPHEROL) [Concomitant]
  9. LUTEIN (XANTOFYL) [Concomitant]
  10. IMURAN [Concomitant]
  11. LASIX [Concomitant]
  12. PULMICORT [Concomitant]
  13. ALBUTEROL [Concomitant]
  14. NEBUPENT [Concomitant]
  15. CYMBALTA [Concomitant]

REACTIONS (2)
  - DEEP VEIN THROMBOSIS [None]
  - PULMONARY EMBOLISM [None]
